FAERS Safety Report 23934634 (Version 4)
Quarter: 2024Q4

REPORT INFORMATION
  Report Type: Report from Study
  Country: US (occurrence: US)
  Receive Date: 20240603
  Receipt Date: 20241129
  Transmission Date: 20250115
  Serious: Yes (Other)
  Sender: NOVARTIS
  Company Number: US-002147023-NVSC2024US114780

PATIENT
  Sex: Female

DRUGS (1)
  1. KESIMPTA [Suspect]
     Active Substance: OFATUMUMAB
     Indication: Product used for unknown indication
     Dosage: UNK
     Route: 065

REACTIONS (20)
  - Epilepsy [Unknown]
  - Bell^s palsy [Recovered/Resolved]
  - Blindness unilateral [Unknown]
  - Somnolence [Unknown]
  - Fatigue [Unknown]
  - Asthenia [Unknown]
  - Anxiety [Unknown]
  - Crying [Unknown]
  - Hyperventilation [Unknown]
  - Joint dislocation [Unknown]
  - Tendon injury [Unknown]
  - Depression [Unknown]
  - Hypoaesthesia [Unknown]
  - Diplopia [Unknown]
  - Vision blurred [Unknown]
  - Dysphagia [Unknown]
  - Influenza [Unknown]
  - Muscle spasms [Unknown]
  - Muscle twitching [Unknown]
  - Disease recurrence [Recovering/Resolving]
